FAERS Safety Report 9474623 (Version 2)
Quarter: 2013Q4

REPORT INFORMATION
  Report Type: Spontaneous
  Country: CA (occurrence: CA)
  Receive Date: 20130823
  Receipt Date: 20131011
  Transmission Date: 20140711
  Serious: Yes (Hospitalization)
  Sender: FDA-Public Use
  Company Number: CA-OPTIMER-20130334

PATIENT
  Age: 69 Year
  Sex: Male
  Weight: 73.47 kg

DRUGS (5)
  1. VENLAFAXINE TEVA [Concomitant]
     Dosage: 1 TABLET, QD
     Route: 048
  2. FLORESTOR [Concomitant]
     Dosage: 500 MG, BID
     Route: 048
  3. DIFICID [Suspect]
     Indication: CLOSTRIDIUM DIFFICILE COLITIS
     Dosage: 200 MG, BID
     Route: 048
     Dates: start: 20130717, end: 201307
  4. RANITIDINE [Concomitant]
     Dosage: 1 TABLET, QD
     Route: 048
  5. PINDOLOL [Concomitant]
     Dosage: 1 TABLET, BID
     Route: 048

REACTIONS (3)
  - Diarrhoea [Recovered/Resolved]
  - Drug ineffective [Unknown]
  - Off label use [Unknown]
